FAERS Safety Report 6465420-2 (Version None)
Quarter: 2009Q4

REPORT INFORMATION
  Report Type: 
  Country: None (occurrence: None)
  Receive Date: 20091201
  Receipt Date: 20090513
  Transmission Date: 20100525
  Serious: No
  Sender: FDA-Public Use
  Company Number: US-AMGEN-KDL304791

PATIENT
  Sex: Female
  Weight: 73.1 kg

DRUGS (5)
  1. ENBREL [Suspect]
     Indication: RHEUMATOID ARTHRITIS
     Route: 058
     Dates: start: 20040515
  2. PREDNISONE TAB [Concomitant]
     Route: 048
     Dates: start: 20031001
  3. ASPIRIN [Concomitant]
     Route: 048
     Dates: start: 20080301
  4. VITAMIN TAB [Concomitant]
     Route: 048
     Dates: start: 20030301
  5. CAFFEINE [Concomitant]

REACTIONS (2)
  - HERPES ZOSTER [None]
  - HYPOGLYCAEMIA [None]
